FAERS Safety Report 18343844 (Version 1)
Quarter: 2020Q4

REPORT INFORMATION
  Report Type: Spontaneous
  Country: US (occurrence: US)
  Receive Date: 20201002
  Receipt Date: 20201002
  Transmission Date: 20210114
  Serious: Yes (Other)
  Sender: FDA-Public Use
  Company Number: None

PATIENT
  Age: 63 Year
  Sex: Female

DRUGS (1)
  1. HUMIRA [Suspect]
     Active Substance: ADALIMUMAB
     Indication: RHEUMATOID ARTHRITIS
     Dosage: ?          OTHER FREQUENCY:Q7DAYS ;?
     Route: 058
     Dates: start: 20200312

REACTIONS (3)
  - Therapy cessation [None]
  - Lung neoplasm malignant [None]
  - Pleural effusion [None]

NARRATIVE: CASE EVENT DATE: 20200921
